FAERS Safety Report 4625013-6 (Version None)
Quarter: 2005Q1

REPORT INFORMATION
  Report Type: 
  Country: None (occurrence: None)
  Receive Date: 20050330
  Receipt Date: 20050330
  Transmission Date: 20050727
  Serious: Yes (Other)
  Sender: FDA-Public Use
  Company Number: None

PATIENT
  Sex: Female
  Weight: 2.903 kg

DRUGS (2)
  1. DEXTROSE 10% [Suspect]
  2. ELECTROLYTES [Concomitant]

REACTIONS (1)
  - MEDICATION ERROR [None]
